FAERS Safety Report 9789310 (Version 1)
Quarter: 2013Q4

REPORT INFORMATION
  Report Type: Spontaneous
  Country: GB (occurrence: GB)
  Receive Date: 20131231
  Receipt Date: 20131231
  Transmission Date: 20140711
  Serious: Yes (Other)
  Sender: FDA-Public Use
  Company Number: GB-BAXTER-2013BAX052617

PATIENT
  Age: 58 Year
  Sex: 0

DRUGS (5)
  1. METRONIDAZOLE 500 MG / 100 ML INTRAVENOUS INFUSION [Suspect]
     Indication: PROPHYLAXIS
     Route: 042
     Dates: start: 20110110, end: 20110110
  2. CEFUROXIME [Suspect]
     Indication: PROPHYLAXIS
     Route: 042
     Dates: start: 20110110, end: 20110110
  3. TAZOCIN [Suspect]
     Indication: NOSOCOMIAL INFECTION
     Route: 042
     Dates: start: 20110113, end: 20110119
  4. TAZOCIN [Suspect]
     Indication: PNEUMONIA
  5. AMOXICILLIN [Concomitant]
     Indication: PRODUCT USED FOR UNKNOWN INDICATION
     Route: 065
     Dates: start: 201108

REACTIONS (2)
  - Clostridium difficile infection [Recovered/Resolved]
  - Pneumonia [Unknown]
